FAERS Safety Report 16245440 (Version 2)
Quarter: 2019Q2

REPORT INFORMATION
  Report Type: Spontaneous
  Country: BR (occurrence: BR)
  Receive Date: 20190426
  Receipt Date: 20190527
  Transmission Date: 20190711
  Serious: Yes (Hospitalization, Other)
  Sender: FDA-Public Use
  Company Number: BR-SA-2019SA111618

PATIENT
  Sex: Female
  Weight: 96 kg

DRUGS (5)
  1. CLEXANE [Suspect]
     Active Substance: ENOXAPARIN SODIUM
     Dosage: UNK, QD 4 APPLICATIONS PER DAY (2 AT MORNING AND 2 AT NIGHT) 80 MG/0.8 ML
     Route: 058
     Dates: start: 20190114
  2. DIPYRONE [Concomitant]
     Active Substance: DIPYRONE
     Indication: PAIN
     Dosage: 1 DF, QD
     Route: 048
     Dates: start: 201904, end: 20190416
  3. DORFLEX [Concomitant]
     Active Substance: CAFFEINE\DIPYRONE\ORPHENADRINE
     Indication: PAIN
     Dosage: 1 DF, QD
     Route: 048
     Dates: start: 20190417, end: 20190417
  4. CLEXANE [Suspect]
     Active Substance: ENOXAPARIN SODIUM
     Indication: PLASMA CELL MYELOMA
     Dosage: UNK 100 MG/1.0 ML
     Route: 058
  5. CLEXANE [Suspect]
     Active Substance: ENOXAPARIN SODIUM
     Dosage: 2 APPLICATION IN THE MORNING AND 2 AT NIGHT
     Route: 058

REACTIONS (19)
  - Respiratory failure [Unknown]
  - Depression [Not Recovered/Not Resolved]
  - Pulmonary embolism [Unknown]
  - Application site reaction [Not Recovered/Not Resolved]
  - Off label use [Unknown]
  - Hepatic failure [Unknown]
  - Femur fracture [Unknown]
  - Nodule [Not Recovered/Not Resolved]
  - Plasma cell myeloma [Not Recovered/Not Resolved]
  - Product administration interrupted [Unknown]
  - Weight decreased [Not Recovered/Not Resolved]
  - Thrombosis [Unknown]
  - Erythema [Not Recovered/Not Resolved]
  - Iron deficiency anaemia [Not Recovered/Not Resolved]
  - Renal failure [Unknown]
  - Polyuria [Not Recovered/Not Resolved]
  - Hospitalisation [Recovered/Resolved]
  - Bacterial infection [Not Recovered/Not Resolved]
  - Bacterial infection [Unknown]

NARRATIVE: CASE EVENT DATE: 201902
